FAERS Safety Report 6878194-8 (Version None)
Quarter: 2010Q3

REPORT INFORMATION
  Report Type: 
  Country: None (occurrence: None)
  Receive Date: 20100728
  Receipt Date: 20100714
  Transmission Date: 20110219
  Serious: Yes (Life-Threatening, Hospitalization)
  Sender: FDA-Public Use
  Company Number: IS-PFIZER INC-2010087891

PATIENT
  Age: 20 Year
  Sex: Male

DRUGS (1)
  1. LYRICA [Suspect]
     Dosage: 5 CAPSULES

REACTIONS (1)
  - GRAND MAL CONVULSION [None]
